FAERS Safety Report 8217525-3 (Version None)
Quarter: 2012Q1

REPORT INFORMATION
  Report Type: 
  Country: None (occurrence: None)
  Receive Date: 20120315
  Receipt Date: 20120302
  Transmission Date: 20120608
  Serious: Yes (Death, Other)
  Sender: FDA-Public Use
  Company Number: MC201200142

PATIENT
  Sex: Male
  Weight: 99.8 kg

DRUGS (1)
  1. ANGIOMAX [Suspect]
     Indication: PERCUTANEOUS CORONARY INTERVENTION
     Dosage: BOLUS, INTRAVENOUS; INFUSION, INTRAVENOUS
     Route: 040

REACTIONS (1)
  - HAEMORRHAGIC STROKE [None]
